FAERS Safety Report 7908563-6 (Version None)
Quarter: 2011Q4

REPORT INFORMATION
  Report Type: 
  Country: None (occurrence: None)
  Receive Date: 20111111
  Receipt Date: 20111107
  Transmission Date: 20120403
  Serious: Yes (Hospitalization)
  Sender: FDA-Public Use
  Company Number: IT-PFIZER INC-2011268271

PATIENT
  Age: 52 Year
  Sex: Male
  Weight: 114 kg

DRUGS (10)
  1. SILDENAFIL CITRATE [Suspect]
     Indication: PULMONARY HYPERTENSION
     Dosage: 60 MG, UNK
     Route: 048
     Dates: start: 20090201
  2. RIOCIGUAT [Suspect]
     Indication: PULMONARY HYPERTENSION
     Dosage: UNK
     Route: 048
     Dates: start: 20110913
  3. KANRENOL [Concomitant]
     Dosage: UNK
     Dates: start: 20090701
  4. FUROSEMIDE [Concomitant]
     Dosage: UNK
     Dates: start: 20110619, end: 20110623
  5. BLINDED THERAPY [Suspect]
     Dosage: UNK
     Route: 065
     Dates: start: 20110616, end: 20110913
  6. LASIX [Concomitant]
     Dosage: UNK
     Dates: start: 20110624
  7. AMPICILLIN SODIUM/SULBACTAM SODIUM [Concomitant]
     Dosage: UNK
     Dates: start: 20110619, end: 20110625
  8. PANTOPRAZOLE SODIUM [Concomitant]
  9. DEURSIL [Concomitant]
     Dosage: UNK
     Dates: start: 20060101
  10. AUGMENTIN '125' [Concomitant]
     Dosage: UNK
     Dates: start: 20110712, end: 20110802

REACTIONS (1)
  - ERYSIPELAS [None]
